FAERS Safety Report 15593949 (Version 2)
Quarter: 2019Q3

REPORT INFORMATION
  Report Type: Spontaneous
  Country: GB (occurrence: GB)
  Receive Date: 20181107
  Receipt Date: 20190806
  Transmission Date: 20191004
  Serious: Yes (Hospitalization, Other)
  Sender: FDA-Public Use
  Company Number: GB-MYLANLABS-2018M1006609

PATIENT
  Age: 28 Year
  Sex: Female

DRUGS (7)
  1. HYDROXYCHLOROQUINE [Concomitant]
     Active Substance: HYDROXYCHLOROQUINE
     Indication: RHEUMATOID ARTHRITIS
     Dosage: 400 MG, UNK
     Route: 065
  2. SULFASALAZINE. [Suspect]
     Active Substance: SULFASALAZINE
     Dosage: 2 G, QD
     Route: 065
  3. HYDROXYCHLOROQUINE [Concomitant]
     Active Substance: HYDROXYCHLOROQUINE
     Dosage: 200 MG, UNK
     Route: 065
  4. PREDNISOLONE. [Suspect]
     Active Substance: PREDNISOLONE
     Indication: DRUG REACTION WITH EOSINOPHILIA AND SYSTEMIC SYMPTOMS
     Dosage: 60 MG, UNK
     Route: 065
  5. SULFASALAZINE. [Suspect]
     Active Substance: SULFASALAZINE
     Indication: RHEUMATOID ARTHRITIS
     Dosage: 1000 MG, QD
     Route: 065
  6. AMOXICILLIN. [Suspect]
     Active Substance: AMOXICILLIN
     Indication: EAR PAIN
     Route: 065
  7. AMOXICILLIN. [Suspect]
     Active Substance: AMOXICILLIN
     Indication: RHEUMATOID ARTHRITIS

REACTIONS (29)
  - Drug reaction with eosinophilia and systemic symptoms [Recovering/Resolving]
  - Vomiting [Recovering/Resolving]
  - Aspartate aminotransferase increased [Recovering/Resolving]
  - Insomnia [Recovering/Resolving]
  - Splenomegaly [Recovering/Resolving]
  - Lymphadenopathy [Recovering/Resolving]
  - Hallucination [Recovering/Resolving]
  - Lymphocytosis [Recovering/Resolving]
  - Blood albumin decreased [Recovering/Resolving]
  - Fatigue [Recovering/Resolving]
  - Purpura [Recovering/Resolving]
  - Face oedema [Recovering/Resolving]
  - Euphoric mood [Recovering/Resolving]
  - Alanine aminotransferase increased [Recovering/Resolving]
  - White blood cell count increased [Recovering/Resolving]
  - Rash maculo-papular [Recovering/Resolving]
  - Chest pain [Recovering/Resolving]
  - Pharyngitis [Recovering/Resolving]
  - Blood bilirubin increased [Recovering/Resolving]
  - Ear pain [Recovering/Resolving]
  - Blood urine present [Recovering/Resolving]
  - Off label use [Unknown]
  - Nausea [Recovering/Resolving]
  - Serum ferritin increased [Recovering/Resolving]
  - C-reactive protein increased [Recovering/Resolving]
  - Pyrexia [Recovering/Resolving]
  - Pain [Recovering/Resolving]
  - Rash erythematous [Recovering/Resolving]
  - Roseolovirus test positive [Unknown]
